FAERS Safety Report 7844289-5 (Version None)
Quarter: 2011Q4

REPORT INFORMATION
  Report Type: 
  Country: None (occurrence: None)
  Receive Date: 20111025
  Receipt Date: 20111013
  Transmission Date: 20120403
  Serious: Yes (Hospitalization)
  Sender: FDA-Public Use
  Company Number: US-ELI_LILLY_AND_COMPANY-US201108000646

PATIENT
  Age: 74 Year
  Sex: Female

DRUGS (2)
  1. HUMALOG MIX 50/50 [Suspect]
     Indication: DIABETES MELLITUS
     Dosage: 20 U, QD
  2. HUMALOG MIX 50/50 [Suspect]
     Dosage: 20 U, QD

REACTIONS (5)
  - SPEECH DISORDER [None]
  - CEREBROVASCULAR ACCIDENT [None]
  - GAIT DISTURBANCE [None]
  - DYSPHAGIA [None]
  - BALANCE DISORDER [None]
